FAERS Safety Report 5512492-5 (Version None)
Quarter: 2007Q4

REPORT INFORMATION
  Report Type: 
  Country: None (occurrence: None)
  Receive Date: 20071112
  Receipt Date: 20070522
  Transmission Date: 20080405
  Serious: No
  Sender: FDA-Public Use
  Company Number: A0652387A

PATIENT
  Age: 56 Year
  Sex: Male

DRUGS (5)
  1. AVANDAMET [Suspect]
     Dosage: 1TAB TWICE PER DAY
     Route: 048
     Dates: start: 20061201
  2. ALTACE [Concomitant]
  3. TOPROL-XL [Concomitant]
  4. AVAPRO [Concomitant]
  5. INSULIN [Concomitant]

REACTIONS (4)
  - CARDIAC MURMUR [None]
  - COUGH [None]
  - DYSPNOEA [None]
  - JOINT SWELLING [None]
